FAERS Safety Report 11099577 (Version 1)
Quarter: 2015Q2

REPORT INFORMATION
  Report Type: Spontaneous
  Country: ES (occurrence: ES)
  Receive Date: 20150508
  Receipt Date: 20150508
  Transmission Date: 20150821
  Serious: Yes (Death)
  Sender: FDA-Public Use
  Company Number: ES-CIPLA LTD.-2015ES03549

PATIENT

DRUGS (4)
  1. CAPEGARD [Suspect]
     Active Substance: CAPECITABINE
     Dosage: 800 MG/M2, BID ON DAY 2 AND 8
  2. IRINOTECAN [Suspect]
     Active Substance: IRINOTECAN
     Indication: COLORECTAL CANCER METASTATIC
     Dosage: 175 MG/M2, ON DAY 1, EVERY 2 WEEKS
  3. CAPEGARD [Suspect]
     Active Substance: CAPECITABINE
     Indication: COLORECTAL CANCER METASTATIC
     Dosage: 1000 MG/M2, BID ON DAY 2 AND 8
     Route: 048
  4. BEVACIZUMAB [Suspect]
     Active Substance: BEVACIZUMAB
     Indication: COLORECTAL CANCER METASTATIC
     Dosage: 5 MG/KG, ON DAY 1 EVERY 2 WEEKS
     Route: 065

REACTIONS (1)
  - Gastrointestinal perforation [Fatal]
